FAERS Safety Report 26025479 (Version 1)
Quarter: 2025Q4

REPORT INFORMATION
  Report Type: Report from Study
  Country: CR (occurrence: CR)
  Receive Date: 20251111
  Receipt Date: 20251111
  Transmission Date: 20260117
  Serious: Yes (Other)
  Sender: ALEXION PHARMACEUTICALS
  Company Number: CR-AstraZeneca-CH-00987413A

PATIENT
  Sex: Female

DRUGS (1)
  1. DAPAGLIFLOZIN [Suspect]
     Active Substance: DAPAGLIFLOZIN
     Indication: Cardiac failure

REACTIONS (6)
  - Myocardial infarction [Recovering/Resolving]
  - Blood pressure decreased [Recovering/Resolving]
  - Renal failure [Unknown]
  - Blood pressure abnormal [Unknown]
  - Arrhythmia [Unknown]
  - Myocardial infarction [Unknown]
